FAERS Safety Report 5045695-7 (Version None)
Quarter: 2006Q3

REPORT INFORMATION
  Report Type: 
  Country: None (occurrence: None)
  Receive Date: 20060707
  Receipt Date: 20060627
  Transmission Date: 20061208
  Serious: Yes (Hospitalization)
  Sender: FDA-Public Use
  Company Number: JP-MERCK-0607USA00073

PATIENT
  Age: 79 Year
  Sex: Male

DRUGS (11)
  1. PEPCID [Suspect]
     Route: 048
  2. TARGOCID [Suspect]
     Route: 042
     Dates: start: 20060612, end: 20060622
  3. TANATRIL [Suspect]
     Route: 048
  4. LASIX [Concomitant]
     Route: 048
  5. ALDACTONE [Concomitant]
     Route: 048
  6. ASPIRIN [Concomitant]
     Route: 048
  7. LANIRAPID [Concomitant]
     Route: 048
  8. FRANDOL TAPE S [Concomitant]
     Route: 065
  9. ARTIST [Concomitant]
     Route: 048
  10. RYTHMODAN [Concomitant]
     Route: 048
  11. ALLOID G [Concomitant]
     Route: 048

REACTIONS (1)
  - DRUG ERUPTION [None]
